FAERS Safety Report 18835903 (Version 2)
Quarter: 2022Q1

REPORT INFORMATION
  Report Type: Spontaneous
  Country: US (occurrence: US)
  Receive Date: 20210203
  Receipt Date: 20220128
  Transmission Date: 20220424
  Serious: No
  Sender: FDA-Public Use
  Company Number: US-ALLERGAN-2042885US

PATIENT
  Sex: Female

DRUGS (1)
  1. BOTOX COSMETIC [Suspect]
     Active Substance: ONABOTULINUMTOXINA
     Indication: Product used for unknown indication
     Dosage: 10 UNITS, SINGLE

REACTIONS (7)
  - Multiple use of single-use product [Unknown]
  - Poor quality product administered [Unknown]
  - Product preparation error [Unknown]
  - Drug ineffective [Unknown]
  - Injection site erythema [Unknown]
  - Product quality issue [Unknown]
  - Injection site pain [Unknown]
